FAERS Safety Report 13501132 (Version 3)
Quarter: 2018Q2

REPORT INFORMATION
  Report Type: Spontaneous
  Country: US (occurrence: US)
  Receive Date: 20170501
  Receipt Date: 20180507
  Transmission Date: 20180711
  Serious: Yes (Other)
  Sender: FDA-Public Use
  Company Number: US-ROCHE-1881468

PATIENT
  Age: 63 Year
  Sex: Female

DRUGS (2)
  1. ESBRIET [Suspect]
     Active Substance: PIRFENIDONE
     Indication: IDIOPATHIC PULMONARY FIBROSIS
     Dosage: 3 TID
     Route: 048
     Dates: start: 201411
  2. ESBRIET [Suspect]
     Active Substance: PIRFENIDONE
     Dosage: 3 TID
     Route: 048
     Dates: start: 20170811

REACTIONS (4)
  - Decreased appetite [Unknown]
  - Decreased appetite [Unknown]
  - Weight decreased [Unknown]
  - Weight decreased [Unknown]

NARRATIVE: CASE EVENT DATE: 201411
